FAERS Safety Report 25914231 (Version 1)
Quarter: 2025Q4

REPORT INFORMATION
  Report Type: Spontaneous
  Country: EU (occurrence: EU)
  Receive Date: 20251013
  Receipt Date: 20251013
  Transmission Date: 20260118
  Serious: Yes (Hospitalization)
  Sender: INVENTIA HEALTHCARE PRIVATE LIMITED
  Company Number: EU-Inventia-000846

PATIENT
  Age: 59 Year
  Sex: Female

DRUGS (13)
  1. DULOXETINE [Interacting]
     Active Substance: DULOXETINE
     Indication: Product used for unknown indication
  2. METOCLOPRAMIDE [Interacting]
     Active Substance: METOCLOPRAMIDE
     Indication: Product used for unknown indication
     Dosage: 10 MG AS NEEDED (UP TO EIGHT TABLETS PER 24 H)
  3. PANTOPRAZOLE [Concomitant]
     Active Substance: PANTOPRAZOLE
  4. CYSTIPHANE [Concomitant]
  5. ROSUVASTATIN [Concomitant]
     Active Substance: ROSUVASTATIN
  6. MEDROL [Concomitant]
     Active Substance: METHYLPREDNISOLONE
  7. ACETAMINOPHEN [Concomitant]
     Active Substance: ACETAMINOPHEN
  8. ASPIRIN [Concomitant]
     Active Substance: ASPIRIN
  9. LEVOTHYROXINE [Concomitant]
     Active Substance: LEVOTHYROXINE
  10. ALPRAZOLAM [Concomitant]
     Active Substance: ALPRAZOLAM
     Dosage: EXTENDED-RELEASE
  11. AMITRIPTYLINE [Concomitant]
     Active Substance: AMITRIPTYLINE
  12. DIAZEPAM [Concomitant]
     Active Substance: DIAZEPAM
  13. ETILEFRINE [Concomitant]
     Active Substance: ETILEFRINE

REACTIONS (3)
  - Sulphaemoglobinaemia [Recovered/Resolved]
  - Drug interaction [Unknown]
  - Cyanosis [Recovered/Resolved]
